FAERS Safety Report 6288470-8 (Version None)
Quarter: 2009Q3

REPORT INFORMATION
  Report Type: 
  Country: None (occurrence: None)
  Receive Date: 20090729
  Receipt Date: 20090723
  Transmission Date: 20100115
  Serious: Yes (Other)
  Sender: FDA-Public Use
  Company Number: B0586132A

PATIENT
  Sex: Female
  Weight: 60 kg

DRUGS (8)
  1. LANOXIN [Suspect]
     Indication: ARRHYTHMIA
     Dosage: .0625MG PER DAY
     Route: 048
  2. FUROSEMIDE [Concomitant]
     Dosage: 80MG PER DAY
     Route: 048
     Dates: start: 20090203
  3. SPIRONOLACTONE [Concomitant]
     Dosage: 50MG PER DAY
     Route: 048
     Dates: start: 20090309
  4. BISOPROLOL FUMARATE [Concomitant]
     Dosage: 1.25MG PER DAY
     Route: 048
     Dates: start: 20070126, end: 20090710
  5. AZILECT [Concomitant]
     Dosage: 1MG PER DAY
     Dates: start: 20070123
  6. SINEMET [Concomitant]
     Route: 048
     Dates: start: 19990617
  7. SINEMET [Concomitant]
     Dosage: 625MG PER DAY
     Route: 048
     Dates: start: 19981106
  8. SIFROL [Concomitant]
     Dosage: 125MCG PER DAY
     Route: 048
     Dates: start: 19990916

REACTIONS (1)
  - PARKINSON'S DISEASE [None]
